FAERS Safety Report 16106211 (Version 2)
Quarter: 2019Q2

REPORT INFORMATION
  Report Type: Report from Study
  Country: TW (occurrence: TW)
  Receive Date: 20190322
  Receipt Date: 20190417
  Transmission Date: 20190711
  Serious: Yes (Death, Life-Threatening, Hospitalization, Other)
  Sender: FDA-Public Use
  Company Number: TW-ACTELION-A-CH2017-150859

PATIENT
  Age: 80 Year
  Sex: Female

DRUGS (9)
  1. ISOPTIN [Concomitant]
     Active Substance: VERAPAMIL HYDROCHLORIDE
     Dosage: 120 MG, QD
     Route: 048
  2. OLMETEC [Concomitant]
     Active Substance: OLMESARTAN MEDOXOMIL
  3. BURINEX [Concomitant]
     Active Substance: BUMETANIDE
     Dosage: 0.5 MG, BID
     Route: 048
  4. LIPITOR [Concomitant]
     Active Substance: ATORVASTATIN CALCIUM
     Dosage: 10 MG, QD
     Route: 048
  5. CONCOR [Concomitant]
     Active Substance: BISOPROLOL FUMARATE
     Dosage: 2.5 MG, QD
     Route: 048
  6. NOGOUT [Concomitant]
     Dosage: 50 MG, QD
     Route: 048
  7. OPSUMIT [Suspect]
     Active Substance: MACITENTAN
     Indication: PULMONARY ARTERIAL HYPERTENSION
     Dosage: 10 MG, QD
     Route: 048
     Dates: start: 20151019
  8. HIRUDOID [Concomitant]
     Active Substance: GLYCOSAMINOGLYCANS
  9. ORFARIN [Concomitant]
     Active Substance: WARFARIN SODIUM
     Dosage: 1.5 MG, UNK
     Route: 048

REACTIONS (10)
  - Pulmonary arterial hypertension [Fatal]
  - Toothache [Recovered/Resolved]
  - Pulmonary oedema [Unknown]
  - Coma [Unknown]
  - Condition aggravated [Fatal]
  - Seizure [Unknown]
  - Azotaemia [Fatal]
  - Hypertension [Unknown]
  - Disease progression [Fatal]
  - Oedema peripheral [Unknown]

NARRATIVE: CASE EVENT DATE: 20170301
